FAERS Safety Report 7660557-4 (Version None)
Quarter: 2011Q3

REPORT INFORMATION
  Report Type: 
  Country: None (occurrence: None)
  Receive Date: 20110805
  Receipt Date: 20101029
  Transmission Date: 20111222
  Serious: No
  Sender: FDA-Public Use
  Company Number: US-ABBOTT-10P-163-0682285-00

PATIENT
  Age: 50 Year
  Sex: Male

DRUGS (1)
  1. NIASPAN [Suspect]
     Indication: PRODUCT USED FOR UNKNOWN INDICATION
     Dosage: X 2 WEEKS
     Route: 048
     Dates: start: 20101001

REACTIONS (5)
  - PALPITATIONS [None]
  - SKIN BURNING SENSATION [None]
  - SWELLING FACE [None]
  - NAUSEA [None]
  - OEDEMA PERIPHERAL [None]
